FAERS Safety Report 8042521-9 (Version None)
Quarter: 2012Q1

REPORT INFORMATION
  Report Type: 
  Country: None (occurrence: None)
  Receive Date: 20120112
  Receipt Date: 20110114
  Transmission Date: 20120608
  Serious: Yes (Life-Threatening, Hospitalization)
  Sender: FDA-Public Use
  Company Number: US-UCBSA-025822

PATIENT
  Age: 41 Year
  Sex: Male
  Weight: 141 kg

DRUGS (6)
  1. LAMOTRIGINE [Concomitant]
  2. LEVETIRACETAM [Suspect]
     Indication: CONVULSION
     Dosage: GRADUALLY INCREASED
  3. CARBAMAZEPINE [Concomitant]
     Dosage: EXTENDED RELEASE
  4. CITALOPRAM [Concomitant]
     Indication: BIPOLAR DISORDER
  5. CLORAZEPATE DIPOTASSIUM [Concomitant]
     Indication: BIPOLAR DISORDER
     Dosage: AT NIGHT
  6. AMITRIPTYLINE HCL [Concomitant]
     Indication: BIPOLAR DISORDER

REACTIONS (5)
  - OVERDOSE [None]
  - VISION BLURRED [None]
  - ATAXIA [None]
  - LEUKOPENIA [None]
  - THROMBOCYTOPENIA [None]
